FAERS Safety Report 14800240 (Version 1)
Quarter: 2018Q2

REPORT INFORMATION
  Report Type: Spontaneous
  Country: US (occurrence: US)
  Receive Date: 20180416
  Receipt Date: 20180416
  Transmission Date: 20180711
  Serious: Yes (Other)
  Sender: FDA-Public Use
  Company Number: None

PATIENT
  Age: 62 Year
  Sex: Female

DRUGS (15)
  1. BETHANECHOL [Concomitant]
     Active Substance: BETHANECHOL
     Dates: start: 20170721
  2. MAXALTA [Concomitant]
     Dates: start: 20110909
  3. ALBUTEROL. [Concomitant]
     Active Substance: ALBUTEROL
     Dates: start: 20120228
  4. BUTALB/ACETA [Concomitant]
     Dates: start: 20170721
  5. DEXILANT [Concomitant]
     Active Substance: DEXLANSOPRAZOLE
     Dates: start: 20170721
  6. SUMATRIPTAN. [Concomitant]
     Active Substance: SUMATRIPTAN
  7. DICLOFENAC [Concomitant]
     Active Substance: DICLOFENAC
     Dates: start: 20170721
  8. IMITREX [Concomitant]
     Active Substance: SUMATRIPTAN SUCCINATE
     Dates: start: 20120228
  9. CELEXA [Concomitant]
     Active Substance: CITALOPRAM HYDROBROMIDE
     Dates: start: 20120228
  10. FOLIC ACID. [Concomitant]
     Active Substance: FOLIC ACID
     Dates: start: 20170721
  11. PRAMIPEXOLE. [Concomitant]
     Active Substance: PRAMIPEXOLE
     Dates: start: 20170721
  12. PREDNISONE. [Concomitant]
     Active Substance: PREDNISONE
     Dates: start: 20110909
  13. METHOTREXATE. [Concomitant]
     Active Substance: METHOTREXATE
     Dates: start: 20170721
  14. HUMIRA [Suspect]
     Active Substance: ADALIMUMAB
     Indication: RHEUMATOID ARTHRITIS
     Route: 058
     Dates: start: 20120301
  15. QUDEXY XR [Concomitant]
     Active Substance: TOPIRAMATE
     Dates: start: 20180104

REACTIONS (1)
  - Tenoplasty [None]
